FAERS Safety Report 7646106-5 (Version None)
Quarter: 2011Q3

REPORT INFORMATION
  Report Type: 
  Country: None (occurrence: None)
  Receive Date: 20110801
  Receipt Date: 20110725
  Transmission Date: 20111222
  Serious: No
  Sender: FDA-Public Use
  Company Number: US-BIOGENIDEC-2010BI039571

PATIENT
  Age: 33 Year
  Sex: Male

DRUGS (2)
  1. TYSABRI [Suspect]
     Route: 042
     Dates: start: 20110721
  2. TYSABRI [Suspect]
     Indication: MULTIPLE SCLEROSIS
     Route: 042
     Dates: start: 20100927, end: 20110310

REACTIONS (4)
  - MULTIPLE SCLEROSIS RELAPSE [None]
  - CHEST PAIN [None]
  - MUSCLE SPASMS [None]
  - SOMNOLENCE [None]
